FAERS Safety Report 7110859-5 (Version None)
Quarter: 2010Q4

REPORT INFORMATION
  Report Type: 
  Country: None (occurrence: None)
  Receive Date: 20101118
  Receipt Date: 20101105
  Transmission Date: 20110411
  Serious: Yes (Other)
  Sender: FDA-Public Use
  Company Number: PHHY2010JP72348

PATIENT
  Age: 80 Year
  Sex: Male

DRUGS (15)
  1. RASILEZ [Suspect]
     Indication: HYPERTENSION
     Dosage: 150 MG DAILY
     Route: 048
     Dates: start: 20101012
  2. PLAVIX [Concomitant]
     Dosage: 75 MG, UNK
     Route: 048
  3. ZYLORIC ^FRESENIUS^ [Concomitant]
     Dosage: 100 MG, UNK
     Route: 048
  4. OLMETEC [Concomitant]
     Dosage: 40 MG, UNK
     Route: 048
  5. SODIUM BICARBONATE [Concomitant]
     Dosage: 03 G, UNK
     Route: 048
  6. AZELASTINE HCL [Concomitant]
     Dosage: 16 MG, UNK
     Route: 048
  7. TAMSULOSIN HCL [Concomitant]
     Dosage: 0.2 MG, UNK
     Route: 048
  8. THEOLONG [Concomitant]
     Dosage: 200 MG, UNK
     Route: 048
  9. NATEGLINIDE [Concomitant]
     Dosage: 90 MG, UNK
     Route: 048
  10. PREDNISOLONE [Concomitant]
     Route: 048
  11. PELEX [Concomitant]
     Dosage: 03 G, UNK
     Route: 048
  12. CAFFEINE ^HOUDE^ [Concomitant]
     Dosage: 0.035 G, UNK
     Route: 048
  13. CONTOL [Concomitant]
     Dosage: 0.05 G, UNK
     Route: 048
  14. LOXONIN [Concomitant]
     Dosage: 0.6 G, UNK
     Route: 048
  15. ROBAXIN [Concomitant]
     Dosage: 0.25 G, UNK
     Route: 048

REACTIONS (9)
  - ALANINE AMINOTRANSFERASE INCREASED [None]
  - ASPARTATE AMINOTRANSFERASE INCREASED [None]
  - CYST [None]
  - GAMMA-GLUTAMYLTRANSFERASE INCREASED [None]
  - HEPATIC CYST [None]
  - HEPATIC FUNCTION ABNORMAL [None]
  - MALAISE [None]
  - RENAL CYST [None]
  - RENAL FAILURE CHRONIC [None]
